FAERS Safety Report 10732996 (Version 1)
Quarter: 2015Q1

REPORT INFORMATION
  Report Type: Report from Study
  Country: CO (occurrence: CO)
  Receive Date: 20150123
  Receipt Date: 20150123
  Transmission Date: 20150721
  Serious: Yes (Other)
  Sender: FDA-Public Use
  Company Number: CO-ABBVIE-15K-036-1336225-00

PATIENT
  Age: 56 Year
  Sex: Male
  Weight: 66 kg

DRUGS (1)
  1. HUMIRA [Suspect]
     Active Substance: ADALIMUMAB
     Indication: ANKYLOSING SPONDYLITIS
     Route: 058
     Dates: start: 20120626, end: 20141226

REACTIONS (3)
  - Dental caries [Not Recovered/Not Resolved]
  - Post procedural haemorrhage [Not Recovered/Not Resolved]
  - Toothache [Not Recovered/Not Resolved]

NARRATIVE: CASE EVENT DATE: 20150112
